FAERS Safety Report 8772821 (Version 3)
Quarter: 2012Q4

REPORT INFORMATION
  Report Type: 
  Country: US (occurrence: US)
  Receive Date: 20120907
  Receipt Date: 20121126
  Transmission Date: 20130627
  Serious: Yes (Death, Other)
  Sender: FDA-Public Use
  Company Number: US-PFIZER INC-2012217237

PATIENT
  Age: 84 Year
  Sex: Female
  Weight: 59.41 kg

DRUGS (1)
  1. REVATIO [Suspect]
     Indication: PULMONARY HYPERTENSION
     Dosage: 20 mg, 2x/day
     Dates: start: 20120508

REACTIONS (1)
  - Death [Fatal]
